FAERS Safety Report 7483970-7 (Version None)
Quarter: 2011Q2

REPORT INFORMATION
  Report Type: 
  Country: None (occurrence: None)
  Receive Date: 20110509
  Receipt Date: 20110426
  Transmission Date: 20111010
  Serious: Yes (Hospitalization)
  Sender: FDA-Public Use
  Company Number: 1000019785

PATIENT
  Age: 48 Year
  Sex: Female

DRUGS (3)
  1. ESCITALOPRAM [Suspect]
  2. ISOMERIDE (DECFENFLURAMINE HYDROCHLORIDE) [Suspect]
     Dates: start: 19890101, end: 19890101
  3. MEDIATOR (BENFLUOREX HYDROCHLORIDE) [Suspect]
     Dosage: ORAL
     Route: 048
     Dates: start: 20030101, end: 20091101

REACTIONS (3)
  - PULMONARY HYPERTENSION [None]
  - CHRONIC OBSTRUCTIVE PULMONARY DISEASE [None]
  - AORTIC VALVE INCOMPETENCE [None]
